FAERS Safety Report 24381428 (Version 1)
Quarter: 2024Q4

REPORT INFORMATION
  Report Type: Spontaneous
  Country: US (occurrence: US)
  Receive Date: 20241001
  Receipt Date: 20241001
  Transmission Date: 20250114
  Serious: No
  Sender: CHIESI
  Company Number: US-CHIESI-2024CHF03945

PATIENT
  Age: 10 Year
  Sex: Male
  Weight: 28 kg

DRUGS (7)
  1. FERRIPROX [Suspect]
     Active Substance: DEFERIPRONE
     Indication: Haemochromatosis
     Dosage: 500 MILLIGRAM, TID
     Route: 048
     Dates: start: 20220917
  2. FERRIPROX [Suspect]
     Active Substance: DEFERIPRONE
     Indication: Red blood cell transfusion
     Dosage: 1000 MILLIGRAM, TID
     Route: 048
  3. FERRIPROX [Suspect]
     Active Substance: DEFERIPRONE
     Indication: Thalassaemia beta
     Dosage: 500 MILLIGRAM, TID
     Route: 048
  4. VITAMIN D [Concomitant]
     Active Substance: VITAMIN D NOS
     Indication: Product used for unknown indication
     Dosage: UNK
  5. COPPER [Concomitant]
     Active Substance: COPPER
     Indication: Product used for unknown indication
     Dosage: UNK
  6. PEPCID [Concomitant]
     Active Substance: FAMOTIDINE
     Indication: Product used for unknown indication
     Dosage: UNK
  7. DESFERAL [Concomitant]
     Active Substance: DEFEROXAMINE MESYLATE
     Indication: Product used for unknown indication
     Dosage: UNK

REACTIONS (6)
  - Myalgia [Recovered/Resolved]
  - Fatigue [Unknown]
  - White blood cell count decreased [Recovered/Resolved]
  - Hepatic enzyme increased [Recovered/Resolved]
  - Arthralgia [Recovered/Resolved]
  - Off label use [Not Recovered/Not Resolved]

NARRATIVE: CASE EVENT DATE: 20220917
